FAERS Safety Report 18928143 (Version 2)
Quarter: 2021Q2

REPORT INFORMATION
  Report Type: Spontaneous
  Country: US (occurrence: US)
  Receive Date: 20210223
  Receipt Date: 20210413
  Transmission Date: 20210717
  Serious: No
  Sender: FDA-Public Use
  Company Number: US-ASTRAZENECA-2021A051896

PATIENT
  Sex: Female

DRUGS (2)
  1. SYMBICORT [Suspect]
     Active Substance: BUDESONIDE\FORMOTEROL FUMARATE DIHYDRATE
     Indication: DYSPNOEA
     Dosage: UNKNOWN UNKNOWN
     Route: 055
  2. BREZTRI AEROSPHERE [Suspect]
     Active Substance: BUDESONIDE\FORMOTEROL\GLYCOPYRRONIUM
     Indication: OBSTRUCTIVE AIRWAYS DISORDER
     Dosage: 160/9/4.8 MCG, TWO TIMES A DAY
     Route: 055
     Dates: start: 202101

REACTIONS (6)
  - Cough [Not Recovered/Not Resolved]
  - Product design confusion [Unknown]
  - Product contamination physical [Unknown]
  - Drug ineffective [Not Recovered/Not Resolved]
  - Device use issue [Not Recovered/Not Resolved]
  - Intentional device misuse [Recovered/Resolved]
